FAERS Safety Report 9499162 (Version 2)
Quarter: 2013Q4

REPORT INFORMATION
  Report Type: Spontaneous
  Country: AR (occurrence: AR)
  Receive Date: 20130905
  Receipt Date: 20131001
  Transmission Date: 20140711
  Serious: Yes (Hospitalization, Other)
  Sender: FDA-Public Use
  Company Number: AR-AMGEN-ARGSP2013061528

PATIENT
  Age: 60 Year
  Sex: Male

DRUGS (4)
  1. ENBREL [Suspect]
     Indication: RHEUMATOID ARTHRITIS
     Dosage: 50 MG, WEEKLY
     Route: 065
     Dates: start: 20061024, end: 20130129
  2. METHOTREXATE SODIUM [Suspect]
     Indication: RHEUMATOID ARTHRITIS
     Dosage: 10 MG, WEEKLY
     Route: 065
     Dates: start: 20061024
  3. METHOTREXATE SODIUM [Suspect]
     Dosage: 7.5 MG, WEEKLY
     Route: 065
  4. SULFAMETHOXAZOLE W/TRIMETHOPRIM [Concomitant]
     Dosage: UNK

REACTIONS (14)
  - Hernia [Recovering/Resolving]
  - Gait disturbance [Recovering/Resolving]
  - Spinal disorder [Recovering/Resolving]
  - Endocarditis [Recovered/Resolved]
  - Immunosuppression [Recovering/Resolving]
  - Gastritis [Recovering/Resolving]
  - Weight decreased [Recovering/Resolving]
  - Vomiting [Recovering/Resolving]
  - Abdominal pain upper [Recovering/Resolving]
  - Arthritis [Recovering/Resolving]
  - Pain [Recovering/Resolving]
  - Peritonitis [Recovering/Resolving]
  - Osteomyelitis [Recovering/Resolving]
  - Streptococcal infection [Recovered/Resolved]
